FAERS Safety Report 9511356 (Version 3)
Quarter: 2013Q4

REPORT INFORMATION
  Report Type: Report from Study
  Country: US (occurrence: US)
  Receive Date: 20130910
  Receipt Date: 20131223
  Transmission Date: 20140711
  Serious: No
  Sender: FDA-Public Use
  Company Number: US-ASTRAZENECA-2013SE18987

PATIENT
  Age: 55 Year
  Sex: Female
  Weight: 77.1 kg

DRUGS (3)
  1. NEXIUM [Suspect]
     Indication: GASTROOESOPHAGEAL REFLUX DISEASE
     Route: 048
     Dates: start: 2001
  2. NEXIUM [Suspect]
     Indication: GASTROOESOPHAGEAL REFLUX DISEASE
     Route: 048
     Dates: start: 2001
  3. NEXIUM [Suspect]
     Indication: HIATUS HERNIA
     Route: 048
     Dates: start: 2001

REACTIONS (10)
  - Gastrooesophageal reflux disease [Unknown]
  - Adverse event [Unknown]
  - Chest pain [Unknown]
  - Oropharyngeal pain [Unknown]
  - Aphagia [Unknown]
  - Hypothyroidism [Unknown]
  - Stress [Unknown]
  - Alopecia [Unknown]
  - Vomiting [Unknown]
  - Intentional drug misuse [Unknown]
